FAERS Safety Report 5136162-0 (Version None)
Quarter: 2006Q4

REPORT INFORMATION
  Report Type: 
  Country: None (occurrence: None)
  Receive Date: 20061027
  Receipt Date: 20061016
  Transmission Date: 20070319
  Serious: Yes (Hospitalization)
  Sender: FDA-Public Use
  Company Number: US-JNJFOC-20061005106

PATIENT
  Age: 61 Year
  Sex: Female

DRUGS (2)
  1. FENTANYL CITRATE [Suspect]
     Indication: PAIN MANAGEMENT
     Route: 062
  2. UNKNOWN PAIN PILLS [Suspect]
     Indication: PAIN
     Route: 065

REACTIONS (3)
  - AGITATION [None]
  - LETHARGY [None]
  - MENTAL STATUS CHANGES [None]
